FAERS Safety Report 6037595-0 (Version None)
Quarter: 2009Q1

REPORT INFORMATION
  Report Type: 
  Country: None (occurrence: None)
  Receive Date: 20090114
  Receipt Date: 20090108
  Transmission Date: 20090719
  Serious: Yes (Hospitalization, Disabling)
  Sender: FDA-Public Use
  Company Number: US-ROXANE LABORATORIES, INC.-2009-RO-00037RO

PATIENT
  Age: 58 Year
  Sex: Male

DRUGS (1)
  1. LITHIUM CARBONATE [Suspect]

REACTIONS (2)
  - BIPOLAR DISORDER [None]
  - NEUROPATHY PERIPHERAL [None]
